FAERS Safety Report 5254743-0 (Version None)
Quarter: 2007Q1

REPORT INFORMATION
  Report Type: 
  Country: None (occurrence: None)
  Receive Date: 20070228
  Receipt Date: 20070213
  Transmission Date: 20070707
  Serious: Yes (Hospitalization)
  Sender: FDA-Public Use
  Company Number: 2007SP002773

PATIENT
  Age: 40 Year
  Sex: Male

DRUGS (2)
  1. PEG-INTRON [Suspect]
     Indication: HEPATITIS C
     Dosage: 96 MCG; QW; SC
     Route: 058
  2. REBETOL [Suspect]
     Indication: HEPATITIS C
     Dosage: 1000 MG; QD; PO
     Route: 048

REACTIONS (9)
  - CONTUSION [None]
  - DEHYDRATION [None]
  - DIARRHOEA [None]
  - FATIGUE [None]
  - INFLUENZA LIKE ILLNESS [None]
  - NAUSEA [None]
  - PNEUMONIA [None]
  - SKIN LESION [None]
  - VOMITING [None]
